FAERS Safety Report 11330964 (Version 1)
Quarter: 2015Q3

REPORT INFORMATION
  Report Type: Spontaneous
  Country: US (occurrence: None)
  Receive Date: 20150731
  Receipt Date: 20150731
  Transmission Date: 20151125
  Serious: Yes (Life-Threatening, Hospitalization)
  Sender: FDA-Public Use
  Company Number: None

PATIENT
  Age: 65 Year
  Sex: Male
  Weight: 89.8 kg

DRUGS (1)
  1. TRAMADOL. [Suspect]
     Active Substance: TRAMADOL
     Indication: PAIN
     Dosage: MG
     Route: 048
     Dates: start: 20150520, end: 20150524

REACTIONS (5)
  - Muscle twitching [None]
  - Seizure [None]
  - Altered state of consciousness [None]
  - Respiratory depression [None]
  - Lethargy [None]

NARRATIVE: CASE EVENT DATE: 20150525
